FAERS Safety Report 9854836 (Version 2)
Quarter: 2014Q1

REPORT INFORMATION
  Report Type: Spontaneous
  Country: CA (occurrence: CA)
  Receive Date: 20140130
  Receipt Date: 20140130
  Transmission Date: 20141002
  Serious: Yes (Other)
  Sender: FDA-Public Use
  Company Number: CA-AMGEN-CANSP2013081210

PATIENT
  Age: 71 Year
  Sex: Female
  Weight: 51.7 kg

DRUGS (3)
  1. PROLIA [Suspect]
     Indication: OSTEOPOROSIS POSTMENOPAUSAL
     Dosage: UNK UNK, Q6MO
     Route: 058
     Dates: start: 20120925
  2. LIPITOR [Concomitant]
     Indication: BLOOD CHOLESTEROL
     Dosage: 10 MG, QD
     Route: 048
  3. PREVACID [Concomitant]
     Indication: GASTROOESOPHAGEAL REFLUX DISEASE
     Dosage: 30 MG, BID
     Route: 048

REACTIONS (5)
  - Tooth abscess [Recovered/Resolved]
  - Pain in jaw [Recovered/Resolved]
  - Tooth infection [Recovered/Resolved]
  - Mastication disorder [Recovered/Resolved]
  - Toothache [Recovered/Resolved]
